FAERS Safety Report 9907254 (Version 1)
Quarter: 2014Q1

REPORT INFORMATION
  Report Type: Spontaneous
  Country: US (occurrence: US)
  Receive Date: 20140218
  Receipt Date: 20140218
  Transmission Date: 20141002
  Serious: Yes (Death, Hospitalization, Other)
  Sender: FDA-Public Use
  Company Number: US-JNJFOC-20140209693

PATIENT
  Age: 83 Year
  Sex: Female

DRUGS (1)
  1. IMBRUVICA [Suspect]
     Indication: MANTLE CELL LYMPHOMA
     Route: 048
     Dates: start: 20131222

REACTIONS (5)
  - Pseudomonal sepsis [Fatal]
  - Urinary tract infection pseudomonal [Unknown]
  - Clostridium difficile infection [Unknown]
  - Mantle cell lymphoma [Unknown]
  - Hyperkalaemia [Unknown]
